FAERS Safety Report 8953286 (Version 2)
Quarter: 2013Q2

REPORT INFORMATION
  Report Type: Spontaneous
  Country: US (occurrence: US)
  Receive Date: 20121206
  Receipt Date: 20130402
  Transmission Date: 20140414
  Serious: Yes (Hospitalization, Other)
  Sender: FDA-Public Use
  Company Number: US-BAYER-2012-126094

PATIENT
  Age: 31 Year
  Sex: Female

DRUGS (6)
  1. YASMIN [Suspect]
  2. YAZ [Suspect]
  3. METFORMIN [Concomitant]
  4. TRICOR [Concomitant]
  5. LISINOPRIL [Concomitant]
  6. KETEK [Concomitant]

REACTIONS (7)
  - Pulmonary embolism [None]
  - Pulmonary embolism [None]
  - Deep vein thrombosis [None]
  - Cholelithiasis [None]
  - Injury [None]
  - Pain [None]
  - Pain [None]
